FAERS Safety Report 8593608-3 (Version None)
Quarter: 2012Q3

REPORT INFORMATION
  Report Type: 
  Country: None (occurrence: None)
  Receive Date: 20120814
  Receipt Date: 20120809
  Transmission Date: 20120928
  Serious: Yes (Hospitalization, Other)
  Sender: FDA-Public Use
  Company Number: JP-VERTEX PHARMACEUTICALS INC.-AE-2012-009810

PATIENT
  Age: 67 Year
  Sex: Male

DRUGS (7)
  1. PEGINTERFERON ALFA-2B [Concomitant]
     Indication: HEPATITIS C
     Route: 058
     Dates: start: 20120510
  2. TELAVIC [Suspect]
     Indication: HEPATITIS C
     Route: 048
     Dates: start: 20120510, end: 20120512
  3. TELAVIC [Suspect]
     Route: 048
     Dates: start: 20120513, end: 20120530
  4. TELAVIC [Suspect]
     Route: 048
     Dates: start: 20120606
  5. JUZENTAIHOTO [Concomitant]
     Route: 048
     Dates: start: 20120510
  6. TELAVIC [Suspect]
     Route: 048
     Dates: start: 20120531, end: 20120605
  7. RIBAVIRIN [Concomitant]
     Indication: HEPATITIS C
     Route: 048
     Dates: start: 20120510

REACTIONS (4)
  - ERYTHEMA [None]
  - PLEURISY [None]
  - OFF LABEL USE [None]
  - RENAL DISORDER [None]
